FAERS Safety Report 7728486-5 (Version None)
Quarter: 2011Q3

REPORT INFORMATION
  Report Type: 
  Country: None (occurrence: None)
  Receive Date: 20110905
  Receipt Date: 20110830
  Transmission Date: 20111222
  Serious: Yes (Other)
  Sender: FDA-Public Use
  Company Number: PHHY2011US18538

PATIENT
  Sex: Female

DRUGS (3)
  1. GILENYA [Suspect]
     Indication: MULTIPLE SCLEROSIS
     Dosage: 0.5 MG, QD
     Route: 048
     Dates: start: 20101122, end: 20110304
  2. OXYCODONE HCL [Concomitant]
     Indication: PAIN
     Dosage: 5 MG, PER MONTH
  3. VITAMIN D [Concomitant]
     Dosage: 2000 U, DAILY

REACTIONS (8)
  - RETINAL HAEMORRHAGE [None]
  - MACULOPATHY [None]
  - RETINAL VEIN OCCLUSION [None]
  - CYSTOID MACULAR OEDEMA [None]
  - VISUAL ACUITY REDUCED [None]
  - FUNDOSCOPY ABNORMAL [None]
  - MACULAR OEDEMA [None]
  - VISION BLURRED [None]
